FAERS Safety Report 17426145 (Version 1)
Quarter: 2020Q1

REPORT INFORMATION
  Report Type: Spontaneous
  Country: US (occurrence: US)
  Receive Date: 20200217
  Receipt Date: 20200217
  Transmission Date: 20200409
  Serious: Yes (Death, Other)
  Sender: FDA-Public Use
  Company Number: US-ROCHE-2548007

PATIENT
  Age: 75 Year
  Sex: Male
  Weight: 74.91 kg

DRUGS (1)
  1. VALCYTE [Suspect]
     Active Substance: VALGANCICLOVIR HYDROCHLORIDE
     Indication: HEART TRANSPLANT
     Route: 048
     Dates: start: 20150101

REACTIONS (14)
  - Skin disorder [Unknown]
  - Asthenia [Unknown]
  - Gait disturbance [Unknown]
  - Oedema peripheral [Recovered/Resolved]
  - Limb injury [Unknown]
  - Cognitive disorder [Unknown]
  - Communication disorder [Unknown]
  - Sensitive skin [Unknown]
  - Skin laceration [Unknown]
  - Fall [Unknown]
  - Decreased appetite [Unknown]
  - Skin fragility [Unknown]
  - Multiple organ dysfunction syndrome [Fatal]
  - Haemorrhage [Unknown]

NARRATIVE: CASE EVENT DATE: 2019
